FAERS Safety Report 23064705 (Version 1)
Quarter: 2023Q4

REPORT INFORMATION
  Report Type: Spontaneous
  Country: US (occurrence: None)
  Receive Date: 20231013
  Receipt Date: 20231013
  Transmission Date: 20240110
  Serious: Yes (Life-Threatening, Hospitalization)
  Sender: FDA-Public Use
  Company Number: None

PATIENT
  Age: 82 Year
  Sex: Male
  Weight: 129.15 kg

DRUGS (15)
  1. SULFAMETHOXAZOLE\TRIMETHOPRIM [Suspect]
     Active Substance: SULFAMETHOXAZOLE\TRIMETHOPRIM
     Indication: Antibiotic prophylaxis
     Dosage: OTHER QUANTITY : 1 TABLET(S);?FREQUENCY : EVERY 12 HOURS;?
     Route: 048
     Dates: start: 20230318, end: 20230322
  2. LINEZOLID [Suspect]
     Active Substance: LINEZOLID
     Indication: Antibiotic prophylaxis
     Dosage: OTHER QUANTITY : 1 TABLET(S);?FREQUENCY : EVERY 12 HOURS;?
     Route: 048
     Dates: start: 20230318, end: 20230322
  3. ASPIRIN [Concomitant]
     Active Substance: ASPIRIN
  4. AMLODIPINE [Concomitant]
     Active Substance: AMLODIPINE BESYLATE
  5. ATORVASTATIN [Concomitant]
     Active Substance: ATORVASTATIN
  6. CLOPIDOGREL [Concomitant]
     Active Substance: CLOPIDOGREL BISULFATE
  7. Ergocalciferol(vitaminD2) [Concomitant]
  8. FINASTERIDE [Concomitant]
     Active Substance: FINASTERIDE
  9. Humulin R Regular [Concomitant]
  10. Lantsu [Concomitant]
  11. LOSARTAN [Concomitant]
     Active Substance: LOSARTAN
  12. MINOXIDIL [Concomitant]
     Active Substance: MINOXIDIL
  13. TAMSULOSIN [Concomitant]
     Active Substance: TAMSULOSIN
  14. FUROSEMIDE [Concomitant]
     Active Substance: FUROSEMIDE
  15. GABAPENTIN [Concomitant]
     Active Substance: GABAPENTIN

REACTIONS (3)
  - Swelling [None]
  - Burning sensation [None]
  - Stevens-Johnson syndrome [None]

NARRATIVE: CASE EVENT DATE: 20230323
